FAERS Safety Report 7276320-2 (Version None)
Quarter: 2011Q1

REPORT INFORMATION
  Report Type: 
  Country: None (occurrence: None)
  Receive Date: 20110131
  Receipt Date: 20110121
  Transmission Date: 20110831
  Serious: Yes (Hospitalization, Other)
  Sender: FDA-Public Use
  Company Number: VAL_00524_2011

PATIENT
  Age: 33 Year
  Sex: Male

DRUGS (3)
  1. ZONISAMIDE [Concomitant]
  2. CARBAMAZEPINE [Suspect]
     Indication: STATUS EPILEPTICUS
     Dosage: (400 MG QD)
     Dates: start: 20061001, end: 20070101
  3. CLONAZEPAM [Concomitant]

REACTIONS (6)
  - B-LYMPHOCYTE COUNT DECREASED [None]
  - HYPOGAMMAGLOBULINAEMIA [None]
  - ENCEPHALITIS [None]
  - RASH [None]
  - INTERSTITIAL LUNG DISEASE [None]
  - HEPATIC FUNCTION ABNORMAL [None]
